FAERS Safety Report 20744110 (Version 1)
Quarter: 2022Q2

REPORT INFORMATION
  Report Type: Spontaneous
  Country: US (occurrence: None)
  Receive Date: 20220423
  Receipt Date: 20220423
  Transmission Date: 20220720
  Serious: Yes (Hospitalization)
  Sender: FDA-Public Use
  Company Number: None

PATIENT
  Age: 49 Year
  Sex: Female
  Weight: 45 kg

DRUGS (2)
  1. PAXLOVID [Suspect]
     Active Substance: NIRMATRELVIR\RITONAVIR
  2. CYCLOSPORINE [Suspect]
     Active Substance: CYCLOSPORINE
     Dates: start: 20220413, end: 20220416

REACTIONS (5)
  - Fatigue [None]
  - Acute kidney injury [None]
  - Hypercalcaemia [None]
  - Metabolic acidosis [None]
  - Drug interaction [None]

NARRATIVE: CASE EVENT DATE: 20220413
